FAERS Safety Report 5175579-5 (Version None)
Quarter: 2006Q4

REPORT INFORMATION
  Report Type: 
  Country: None (occurrence: None)
  Receive Date: 20061212
  Receipt Date: 20061212
  Transmission Date: 20070319
  Serious: Yes (Hospitalization)
  Sender: FDA-Public Use
  Company Number: None

PATIENT
  Age: 75 Year
  Sex: Female
  Weight: 62 kg

DRUGS (18)
  1. FLEETS PHOSPHOSODA UNKNOWN FLEETS [Suspect]
     Indication: COLONOSCOPY
     Dosage: 45ML DAILY X1 DOSE PO
     Route: 048
  2. FLEETS PHOSPHOSODA UNKNOWN FLEETS [Suspect]
     Indication: ENDOSCOPY
     Dosage: 45ML DAILY X1 DOSE PO
     Route: 048
  3. PREDNISONE TAB [Concomitant]
  4. NORVASC [Concomitant]
  5. COZAAR [Concomitant]
  6. IMDUR [Concomitant]
  7. NAPROSYN [Concomitant]
  8. FOLIC ACID [Concomitant]
  9. NIACIN [Concomitant]
  10. OS-CAL [Concomitant]
  11. AMBIEN [Concomitant]
  12. XANAX [Concomitant]
  13. NORTRIPTYLINE HCL [Concomitant]
  14. ASPIRIN [Concomitant]
  15. ALLEGRA [Concomitant]
  16. IRON SULFATETHIAMIN COMPOUND TAB [Concomitant]
  17. PROCRIT [Concomitant]
  18. VITAMIN B-12 [Concomitant]

REACTIONS (3)
  - IRON DEFICIENCY ANAEMIA [None]
  - NEPHROPATHY [None]
  - RENAL FAILURE CHRONIC [None]
